FAERS Safety Report 9013069 (Version 4)
Quarter: 2013Q1

REPORT INFORMATION
  Report Type: Spontaneous
  Country: JP (occurrence: JP)
  Receive Date: 20130115
  Receipt Date: 20130213
  Transmission Date: 20140127
  Serious: Yes (Hospitalization)
  Sender: FDA-Public Use
  Company Number: JP-009507513-1301JPN005411

PATIENT
  Age: 62 Year
  Sex: Male
  Weight: 100 kg

DRUGS (9)
  1. PEGINTRON [Suspect]
     Indication: CHRONIC HEPATITIS C
     Dosage: 1.3 MICROGRAM PER KILOGRAM, QW
     Route: 058
     Dates: start: 20121112, end: 20121126
  2. PEGINTRON [Suspect]
     Dosage: UNK
     Route: 058
  3. REBETOL [Suspect]
     Indication: CHRONIC HEPATITIS C
     Dosage: 800 MG, QD
     Route: 048
     Dates: start: 20121112, end: 20121202
  4. REBETOL [Suspect]
     Dosage: UNK
     Route: 048
  5. TELAVIC [Suspect]
     Indication: CHRONIC HEPATITIS C
     Dosage: 2250 MG, QD
     Route: 048
     Dates: start: 20121119, end: 20121202
  6. DIOVAN [Concomitant]
     Dosage: 80 MG, QD
     Route: 048
     Dates: end: 20121202
  7. ADALAT CR [Concomitant]
     Dosage: 20 MG, QD
     Route: 048
     Dates: end: 20121213
  8. TAKEPRON [Concomitant]
     Indication: MELAENA
     Dosage: 15 MG, QD
     Route: 048
     Dates: start: 20121130, end: 20121202
  9. SELBEX [Concomitant]
     Indication: MELAENA
     Dosage: 150 MG, QD
     Route: 048
     Dates: start: 20121130, end: 20121202

REACTIONS (4)
  - Renal disorder [Recovered/Resolved]
  - Nausea [Recovered/Resolved]
  - Vomiting [Recovered/Resolved]
  - Decreased appetite [Recovered/Resolved]
